FAERS Safety Report 19965499 (Version 2)
Quarter: 2024Q1

REPORT INFORMATION
  Report Type: Spontaneous
  Country: GB (occurrence: None)
  Receive Date: 20211018
  Receipt Date: 20240322
  Transmission Date: 20240410
  Serious: Yes (Other)
  Sender: FDA-Public Use
  Company Number: 2021A776482

PATIENT
  Sex: Female

DRUGS (2)
  1. QUETIAPINE [Suspect]
     Active Substance: QUETIAPINE
     Indication: Attention deficit hyperactivity disorder
     Route: 065
  2. QUETIAPINE [Suspect]
     Active Substance: QUETIAPINE
     Indication: Borderline personality disorder
     Route: 065

REACTIONS (12)
  - Blood bilirubin abnormal [Unknown]
  - Blood prolactin abnormal [Not Recovered/Not Resolved]
  - Cortisol increased [Unknown]
  - Hypomenorrhoea [Not Recovered/Not Resolved]
  - Menstruation irregular [Not Recovered/Not Resolved]
  - Blood immunoglobulin A increased [Not Recovered/Not Resolved]
  - Haemolysis [Unknown]
  - Kidney enlargement [Unknown]
  - Renal impairment [Unknown]
  - Alanine aminotransferase abnormal [Unknown]
  - Optic atrophy [Unknown]
  - Eye disorder [Unknown]
